FAERS Safety Report 18051911 (Version 6)
Quarter: 2021Q4

REPORT INFORMATION
  Report Type: Spontaneous
  Country: US (occurrence: US)
  Receive Date: 20200721
  Receipt Date: 20211020
  Transmission Date: 20220303
  Serious: Yes (Other)
  Sender: FDA-Public Use
  Company Number: US-GILEAD-2020-0481688

PATIENT
  Age: 35 Year
  Sex: Female

DRUGS (2)
  1. TRUVADA [Suspect]
     Active Substance: EMTRICITABINE\TENOFOVIR DISOPROXIL FUMARATE
     Indication: Prophylaxis against HIV infection
     Dosage: UNK
     Route: 048
     Dates: start: 20170417, end: 20170504
  2. TRUVADA [Suspect]
     Active Substance: EMTRICITABINE\TENOFOVIR DISOPROXIL FUMARATE
     Dosage: UNK
     Route: 048
     Dates: start: 20170413, end: 20170529

REACTIONS (11)
  - Osteoporosis [Unknown]
  - Femur fracture [Recovered/Resolved]
  - Osteonecrosis [Unknown]
  - Off label use [Unknown]
  - Joint dislocation [Unknown]
  - Skeletal injury [Unknown]
  - Anxiety [Unknown]
  - Anhedonia [Unknown]
  - Emotional distress [Unknown]
  - Pain [Unknown]
  - Bone loss [Unknown]

NARRATIVE: CASE EVENT DATE: 20190305
